FAERS Safety Report 5138097-6 (Version None)
Quarter: 2006Q4

REPORT INFORMATION
  Report Type: 
  Country: None (occurrence: None)
  Receive Date: 20061030
  Receipt Date: 20060410
  Transmission Date: 20070319
  Serious: No
  Sender: FDA-Public Use
  Company Number: US-GLAXOSMITHKLINE-A0601763A

PATIENT
  Age: 58 Year
  Sex: Female

DRUGS (6)
  1. ADVAIR HFA [Suspect]
     Dosage: 1PUFF TWICE PER DAY
     Route: 055
     Dates: start: 20060328, end: 20060401
  2. BENADRYL [Concomitant]
     Route: 048
  3. DARVOCET [Concomitant]
     Route: 048
  4. QUININE SULFATE [Concomitant]
     Route: 048
  5. PHYTOESTROGEN [Concomitant]
  6. VITAMINS [Concomitant]

REACTIONS (5)
  - ADVERSE DRUG REACTION [None]
  - BURNING SENSATION [None]
  - CANDIDIASIS [None]
  - EYE IRRITATION [None]
  - RESPIRATORY TRACT IRRITATION [None]
